FAERS Safety Report 15433558 (Version 1)
Quarter: 2018Q3

REPORT INFORMATION
  Report Type: Spontaneous
  Country: UM (occurrence: UM)
  Receive Date: 20180921
  Receipt Date: 20180921
  Transmission Date: 20181010
  Serious: Yes (Hospitalization, Disabling, Other)
  Sender: FDA-Public Use
  Company Number: None

PATIENT
  Age: 71 Year
  Sex: Female
  Weight: 60.12 kg

DRUGS (7)
  1. ALENDRONATE SODIUM 70 MG. TABLETS [Suspect]
     Active Substance: ALENDRONATE SODIUM
     Indication: OSTEOPOROSIS
     Dosage: ?          QUANTITY:1 DF DOSAGE FORM;OTHER FREQUENCY:PER WEEK;?
     Route: 048
     Dates: start: 20180326, end: 20180625
  2. VITAMIN D?2 [Concomitant]
  3. LEVOTHYROXINE. [Concomitant]
     Active Substance: LEVOTHYROXINE
  4. SULFASALAZINE. [Concomitant]
     Active Substance: SULFASALAZINE
  5. FOLIC ACID. [Concomitant]
     Active Substance: FOLIC ACID
  6. HAIR, SKIN + NAILS GUMMIES [Concomitant]
  7. TUMS [Concomitant]
     Active Substance: CALCIUM CARBONATE

REACTIONS (2)
  - Pain in extremity [None]
  - Gait disturbance [None]

NARRATIVE: CASE EVENT DATE: 20180326
